FAERS Safety Report 8771039 (Version 1)
Quarter: 2012Q4

REPORT INFORMATION
  Report Type: 
  Country: US (occurrence: US)
  Receive Date: 20120906
  Receipt Date: 20120906
  Transmission Date: 20130627
  Serious: No
  Sender: FDA-Public Use
  Company Number: US-PFIZER INC-2012215241

PATIENT
  Age: 31 Year
  Sex: Female
  Weight: 61.22 kg

DRUGS (1)
  1. SYNAREL [Suspect]
     Indication: ENDOMETRIOSIS
     Dosage: UNK, one puff in left nostril in morning and one puff in right nostril in evening
     Dates: start: 20120712

REACTIONS (6)
  - Endometrial hypertrophy [Unknown]
  - Menstrual disorder [Unknown]
  - Nasal discomfort [Unknown]
  - Paraesthesia [Unknown]
  - Product quality issue [Unknown]
  - Incorrect dose administered [Unknown]
